FAERS Safety Report 6862298-X (Version None)
Quarter: 2010Q3

REPORT INFORMATION
  Report Type: 
  Country: None (occurrence: None)
  Receive Date: 20100721
  Receipt Date: 20100712
  Transmission Date: 20110219
  Serious: Yes (Hospitalization)
  Sender: FDA-Public Use
  Company Number: FR-BRISTOL-MYERS SQUIBB COMPANY-15201635

PATIENT
  Age: 50 Year
  Sex: Female

DRUGS (3)
  1. GLUCOPHAGE [Suspect]
     Indication: TYPE 2 DIABETES MELLITUS
     Route: 048
     Dates: end: 20091022
  2. TINSET [Suspect]
     Dates: end: 20091022
  3. POLARAMINE [Suspect]
     Indication: URTICARIA

REACTIONS (1)
  - CYTOLYTIC HEPATITIS [None]
